FAERS Safety Report 6734392-5 (Version None)
Quarter: 2010Q2

REPORT INFORMATION
  Report Type: 
  Country: None (occurrence: None)
  Receive Date: 20100513
  Receipt Date: 20091112
  Transmission Date: 20101027
  Serious: Yes (Other)
  Sender: FDA-Public Use
  Company Number: 2009S1000511

PATIENT
  Age: 68 Year
  Sex: Female
  Weight: 90 kg

DRUGS (12)
  1. CUBICIN [Suspect]
     Indication: CELLULITIS
     Dosage: 5.55 MG/KG;Q24H;IV
     Route: 042
     Dates: start: 20091021, end: 20091103
  2. COLCHICINE [Concomitant]
  3. PREDNISONE TAB [Concomitant]
  4. ASPIRIN [Concomitant]
  5. MULTIVIT [Concomitant]
  6. CALCIUM CARBONATE [Concomitant]
  7. FISH OIL [Concomitant]
  8. SEED OIL [Concomitant]
  9. VITAMIN B COMPLEX TAB [Concomitant]
  10. VITAMIN C [Concomitant]
  11. VITAMIN D [Concomitant]
  12. VUTANUB E [Concomitant]

REACTIONS (2)
  - BLOOD CREATINE PHOSPHOKINASE INCREASED [None]
  - PAIN IN EXTREMITY [None]
